FAERS Safety Report 8681512 (Version 2)
Quarter: 2012Q4

REPORT INFORMATION
  Report Type: Report from Study
  Country: JP (occurrence: None)
  Receive Date: 20120706
  Receipt Date: 20120810
  Transmission Date: 20130627
  Serious: Yes (Hospitalization)
  Sender: FDA-Public Use
  Company Number: TCI2012A03284

PATIENT
  Age: 70 Year
  Sex: Male

DRUGS (6)
  1. ACTOS [Suspect]
     Indication: TYPE 2 DIABETES MELLITUS
     Dosage: 15 MG (15 MG, 1 D), PER ORAL
     Route: 048
     Dates: start: 20090520, end: 20101205
  2. CALCIUM CHANNEL BLOCKERS [Concomitant]
  3. DIURETICS [Concomitant]
  4. ANTITHROMBOTIC AGENTS [Concomitant]
  5. BLOPRESS (CANDESARTAN CILEXETIL) [Concomitant]
  6. PREMINENT (HYDROCHLOROTHIAZIDE, LOSARTAN POTASSIUM) [Concomitant]

REACTIONS (7)
  - Acute myocardial infarction [None]
  - Haemoglobin decreased [None]
  - Dyslipidaemia [None]
  - Blood triglycerides increased [None]
  - High density lipoprotein decreased [None]
  - Hypertension [None]
  - Coronary artery stenosis [None]
